APPROVED DRUG PRODUCT: NITROFURANTOIN
Active Ingredient: NITROFURANTOIN, MACROCRYSTALLINE
Strength: 100MG
Dosage Form/Route: CAPSULE;ORAL
Application: A073696 | Product #003
Applicant: WATSON LABORATORIES INC
Approved: Dec 31, 1992 | RLD: No | RS: No | Type: DISCN